FAERS Safety Report 12328547 (Version 1)
Quarter: 2016Q2

REPORT INFORMATION
  Report Type: Spontaneous
  Country: US (occurrence: US)
  Receive Date: 20160503
  Receipt Date: 20160503
  Transmission Date: 20160815
  Serious: No
  Sender: FDA-Public Use
  Company Number: US-BEH-2015049080

PATIENT
  Sex: Male
  Weight: 44 kg

DRUGS (28)
  1. HIZENTRA [Suspect]
     Active Substance: HUMAN IMMUNOGLOBULIN G
     Indication: EPILEPSY
     Route: 058
  2. LMX [Concomitant]
     Active Substance: LIDOCAINE
  3. AMITRIPTYLINE [Concomitant]
     Active Substance: AMITRIPTYLINE
  4. LEUCOVORIN. [Concomitant]
     Active Substance: LEUCOVORIN
  5. MULTIVITAMINS [Concomitant]
     Active Substance: VITAMINS
  6. HIZENTRA [Suspect]
     Active Substance: HUMAN IMMUNOGLOBULIN G
     Indication: HUMORAL IMMUNE DEFECT
  7. HIZENTRA [Suspect]
     Active Substance: HUMAN IMMUNOGLOBULIN G
  8. DIPHENHYDRAMINE. [Concomitant]
     Active Substance: DIPHENHYDRAMINE
  9. VITAMIN B6 [Concomitant]
     Active Substance: PYRIDOXINE HYDROCHLORIDE
  10. ONFI [Concomitant]
     Active Substance: CLOBAZAM
  11. EPIPEN [Concomitant]
     Active Substance: EPINEPHRINE
  12. VALPROIC ACID. [Concomitant]
     Active Substance: VALPROIC ACID
  13. VITAMIN D [Concomitant]
     Active Substance: CHOLECALCIFEROL
  14. MELATONIN [Concomitant]
     Active Substance: MELATONIN
  15. LIDOCAINE/PRILOCAINE [Concomitant]
  16. LACTASE [Concomitant]
     Active Substance: LACTASE
  17. TRILEPTAL [Concomitant]
     Active Substance: OXCARBAZEPINE
  18. PROBIOTIC [Concomitant]
     Active Substance: PROBIOTICS NOS
  19. MAGNESIUM OXIDE. [Concomitant]
     Active Substance: MAGNESIUM OXIDE
  20. BENTYL [Concomitant]
     Active Substance: DICYCLOMINE HYDROCHLORIDE
  21. OXYGEN. [Concomitant]
     Active Substance: OXYGEN
  22. ALLEGRA [Concomitant]
     Active Substance: FEXOFENADINE HYDROCHLORIDE
  23. NEURONTIN [Concomitant]
     Active Substance: GABAPENTIN
  24. CARNITOR [Concomitant]
     Active Substance: LEVOCARNITINE
  25. OXYCODONE [Concomitant]
     Active Substance: OXYCODONE
  26. DEPAKOTE [Concomitant]
     Active Substance: DIVALPROEX SODIUM
  27. FLUVOXAMINE [Concomitant]
     Active Substance: FLUVOXAMINE
  28. FLUTICASONE [Concomitant]
     Active Substance: FLUTICASONE\FLUTICASONE PROPIONATE

REACTIONS (1)
  - Infusion site nodule [Recovered/Resolved]
